FAERS Safety Report 17735997 (Version 1)
Quarter: 2020Q2

REPORT INFORMATION
  Report Type: Report from Study
  Country: NL (occurrence: NL)
  Receive Date: 20200501
  Receipt Date: 20200501
  Transmission Date: 20200714
  Serious: Yes (Disabling)
  Sender: FDA-Public Use
  Company Number: NL-TEVA-2020-NL-1228081

PATIENT
  Age: 80 Year
  Sex: Male

DRUGS (10)
  1. SULFASALAZINE. [Suspect]
     Active Substance: SULFASALAZINE
     Indication: PSORIATIC ARTHROPATHY
     Dosage: 500MG, 2X/D, UNIT DOSE : 1000 MG ?THERAPY END DATE : ASKED BUT UNKNOWN
     Dates: start: 20050921
  2. SOTALOL. [Concomitant]
     Active Substance: SOTALOL
     Dosage: START DATE, STRENGTH AND DOSE NOT KNOWN, UNIT DOSE : 1 DOSAGE FORM?THERAPY START AND END DATE : ASKE
  3. OMEPRAZOL 20MG [Concomitant]
     Dosage: THERAPY START AND END DATE : ASKED BUT UNKNOWN, UNIT DOSE : 20 MILLIGRAM
  4. TIMOLOL. [Concomitant]
     Active Substance: TIMOLOL
     Dosage: START DATE, STRENGTH AND DOSE NOT KNOWN, 1 DOSAGE FORM?THERAPY START AND END DATE : ASKED BUT UNKNOW
  5. CAD3 500MG/800IE [Concomitant]
     Dosage: START DATE AND END DATE : ASKED BUT UNKNOWN AND DOSE NOT KNOWN, UNIT DOSE : 1 DOSAGE FORM
  6. BARNIDIPINE [Concomitant]
     Active Substance: BARNIDIPINE
     Dosage: START DATE, STRENGTH AND DOSE NOT KNOWN, UNIT DOSE : 1 DOSAGE FORM?THERAPY START AND END DATE : ASKE
  7. EPROSARTAN [Concomitant]
     Active Substance: EPROSARTAN
     Dosage: START DATE, STRENGTH AND DOSE NOT KNOWN, UNIT DOSE : 1DOSAGE FORM?THERAPY START AND END DATE : ASKED
  8. SIMVASTATINE [Concomitant]
     Active Substance: SIMVASTATIN
     Dosage: START DATE, STRENGTH AND DOSE NOT KNOWN, 1 DOSAGE FORM?THERAPY START AND END DATE : ASKED BUT UNKNOW
  9. RISEDRONAAT 35MG [Concomitant]
     Dosage: START DATE AND END DATE : ASKED BUT UNKNOWN, UNIT DOSE : 35 MILLIGRAM
  10. CARBASALAATCALCIUM [Concomitant]
     Active Substance: CARBASPIRIN CALCIUM
     Dosage: START DATE, STRENGTH AND DOSE NOT KNOWN, 1 DOSAGE FORM?THERAPY START DATE AND END DATE: ASKED BUT UN

REACTIONS (1)
  - Pancreatic carcinoma [Not Recovered/Not Resolved]

NARRATIVE: CASE EVENT DATE: 20160901
